FAERS Safety Report 4907010-6 (Version None)
Quarter: 2006Q1

REPORT INFORMATION
  Report Type: 
  Country: None (occurrence: None)
  Receive Date: 20060208
  Receipt Date: 20060127
  Transmission Date: 20060701
  Serious: Yes (Life-Threatening)
  Sender: FDA-Public Use
  Company Number: APP200600005

PATIENT
  Age: 25 Year
  Sex: Female

DRUGS (3)
  1. OXYTOCIN [Suspect]
     Indication: POSTPARTUM HAEMORRHAGE
     Dosage: (10 USP UNITS, ONCE), INTRAMUSCULAR
     Route: 030
     Dates: start: 20051231, end: 20051231
  2. OXYTOCIN [Suspect]
     Indication: PROPHYLAXIS
     Dosage: (10 USP UNITS, ONCE), INTRAMUSCULAR
     Route: 030
     Dates: start: 20051231, end: 20051231
  3. ZYTREC (CETIRIZINE HYDROCHLORIDE) [Concomitant]

REACTIONS (2)
  - ANAPHYLACTIC REACTION [None]
  - REACTION TO DRUG EXCIPIENTS [None]
